FAERS Safety Report 8538180-9 (Version None)
Quarter: 2012Q3

REPORT INFORMATION
  Report Type: 
  Country: None (occurrence: None)
  Receive Date: 20120726
  Receipt Date: 20120713
  Transmission Date: 20120928
  Serious: Yes (Other)
  Sender: FDA-Public Use
  Company Number: US-009507513-1207USA008469

PATIENT

DRUGS (1)
  1. NUVARING [Suspect]
     Dosage: UNK, QM
     Route: 067
     Dates: start: 20120201

REACTIONS (5)
  - UNINTENDED PREGNANCY [None]
  - PREGNANCY WITH CONTRACEPTIVE DEVICE [None]
  - INAPPROPRIATE SCHEDULE OF DRUG ADMINISTRATION [None]
  - INCORRECT DRUG ADMINISTRATION DURATION [None]
  - MATERNAL EXPOSURE DURING PREGNANCY [None]
